FAERS Safety Report 20939409 (Version 1)
Quarter: 2022Q2

REPORT INFORMATION
  Report Type: Spontaneous
  Country: US (occurrence: US)
  Receive Date: 20220609
  Receipt Date: 20220609
  Transmission Date: 20220720
  Serious: No
  Sender: FDA-Public Use
  Company Number: US-PFIZER INC-202200798122

PATIENT
  Age: 63 Year
  Sex: Female

DRUGS (4)
  1. PAXLOVID [Suspect]
     Active Substance: NIRMATRELVIR\RITONAVIR
     Indication: COVID-19 treatment
     Dosage: UNK
     Dates: start: 20220601
  2. LISINOPRIL [Concomitant]
     Active Substance: LISINOPRIL
     Dosage: 40 MG
     Dates: start: 19930102
  3. CARVEDILOL [Concomitant]
     Active Substance: CARVEDILOL
     Dosage: 6.25 MG
     Dates: start: 20211007
  4. ATORVASTATIN [Concomitant]
     Active Substance: ATORVASTATIN
     Dosage: 40 MG
     Dates: start: 20200818, end: 20220531

REACTIONS (5)
  - Anger [Recovering/Resolving]
  - Feeling abnormal [Recovering/Resolving]
  - Muscle spasms [Recovering/Resolving]
  - Palpitations [Recovering/Resolving]
  - Dyspepsia [Recovering/Resolving]

NARRATIVE: CASE EVENT DATE: 20220603
